FAERS Safety Report 6811489-2 (Version None)
Quarter: 2010Q2

REPORT INFORMATION
  Report Type: 
  Country: None (occurrence: None)
  Receive Date: 20100629
  Receipt Date: 20100629
  Transmission Date: 20101027
  Serious: Yes (Hospitalization)
  Sender: FDA-Public Use
  Company Number: None

PATIENT
  Age: 33 Year
  Sex: Female
  Weight: 54.4316 kg

DRUGS (2)
  1. OCELLA [Suspect]
     Indication: ACNE
     Dosage: 1 DAILY
     Dates: start: 20090505, end: 20091212
  2. OCELLA [Suspect]
     Indication: CONTRACEPTION
     Dosage: 1 DAILY
     Dates: start: 20090505, end: 20091212

REACTIONS (1)
  - DEEP VEIN THROMBOSIS [None]
